FAERS Safety Report 19239230 (Version 14)
Quarter: 2022Q3

REPORT INFORMATION
  Report Type: Report from Study
  Country: CN (occurrence: None)
  Receive Date: 20210510
  Receipt Date: 20220707
  Transmission Date: 20221027
  Serious: Yes (Hospitalization)
  Sender: FDA-Public Use
  Company Number: CN-ROCHE-2823343

PATIENT
  Age: 76 Year
  Sex: Male
  Weight: 68.5 kg

DRUGS (38)
  1. GLOFITAMAB [Suspect]
     Active Substance: GLOFITAMAB
     Indication: Diffuse large B-cell lymphoma refractory
     Dosage: DOSE LAST STUDY DRUG ADMIN PRIOR AE/SAE IS 30 MG MOST RECENT DOSE OF STUDY DRUG PRIOR TO AE/SAE 23/A
     Route: 042
     Dates: start: 20210408
  2. OBINUTUZUMAB [Suspect]
     Active Substance: OBINUTUZUMAB
     Indication: Diffuse large B-cell lymphoma refractory
     Dosage: DOSE LAST STUDY DRUG ADMIN PRIOR AE/SAE IS 1000 MG MOST RECENT DOSE OF STUDY DRUG PRIOR TO AE/SAE 01
     Route: 042
     Dates: start: 20210401
  3. OMEPRAZOLE [Concomitant]
     Active Substance: OMEPRAZOLE
     Indication: Prophylaxis
     Route: 042
     Dates: start: 20210330, end: 20210401
  4. OMEPRAZOLE [Concomitant]
     Active Substance: OMEPRAZOLE
     Route: 042
     Dates: start: 20210408, end: 20210408
  5. OMEPRAZOLE [Concomitant]
     Active Substance: OMEPRAZOLE
     Route: 042
     Dates: start: 20210415, end: 20210415
  6. OMEPRAZOLE [Concomitant]
     Active Substance: OMEPRAZOLE
     Route: 042
     Dates: start: 20210423, end: 20210423
  7. OMEPRAZOLE [Concomitant]
     Active Substance: OMEPRAZOLE
     Route: 042
     Dates: start: 20210401, end: 20210401
  8. SODIUM LACTATE RINGER^S [Concomitant]
     Indication: Prophylaxis
     Route: 042
     Dates: start: 20210330, end: 20210401
  9. SODIUM LACTATE RINGER^S [Concomitant]
     Route: 042
     Dates: start: 20210330, end: 20210408
  10. SODIUM LACTATE RINGER^S [Concomitant]
     Route: 042
     Dates: start: 20210415, end: 20210415
  11. SODIUM LACTATE RINGER^S [Concomitant]
     Route: 042
     Dates: start: 20210416, end: 20210416
  12. SODIUM LACTATE RINGER^S [Concomitant]
     Route: 042
     Dates: start: 20210423, end: 20210423
  13. SODIUM LACTATE RINGER^S [Concomitant]
     Route: 042
     Dates: start: 20210408, end: 20210408
  14. SODIUM LACTATE RINGER^S [Concomitant]
     Route: 042
     Dates: start: 20210401, end: 20210401
  15. SODIUM BICARBONATE [Concomitant]
     Active Substance: SODIUM BICARBONATE
     Route: 042
     Dates: start: 20210330, end: 20210401
  16. SODIUM BICARBONATE [Concomitant]
     Active Substance: SODIUM BICARBONATE
     Route: 042
     Dates: start: 20210401, end: 20210401
  17. SODIUM BICARBONATE [Concomitant]
     Active Substance: SODIUM BICARBONATE
     Route: 042
     Dates: start: 20210415, end: 20210415
  18. SODIUM BICARBONATE [Concomitant]
     Active Substance: SODIUM BICARBONATE
     Route: 042
     Dates: start: 20210408, end: 20210408
  19. INDOMETHACIN [Concomitant]
     Active Substance: INDOMETHACIN
     Route: 054
     Dates: start: 20210416, end: 20210416
  20. METHYLPREDNISOLONE [Concomitant]
     Active Substance: METHYLPREDNISOLONE
     Indication: Premedication
     Route: 042
     Dates: start: 20210415, end: 20210415
  21. METHYLPREDNISOLONE [Concomitant]
     Active Substance: METHYLPREDNISOLONE
     Route: 042
     Dates: start: 20210423, end: 20210423
  22. METHYLPREDNISOLONE [Concomitant]
     Active Substance: METHYLPREDNISOLONE
     Route: 042
     Dates: start: 20210401, end: 20210401
  23. METHYLPREDNISOLONE [Concomitant]
     Active Substance: METHYLPREDNISOLONE
     Route: 042
     Dates: start: 20210408, end: 20210408
  24. ACETAMINOPHEN\CAFFEINE [Concomitant]
     Active Substance: ACETAMINOPHEN\CAFFEINE
     Indication: Premedication
     Route: 048
     Dates: start: 20210423, end: 20210423
  25. ACETAMINOPHEN\CAFFEINE [Concomitant]
     Active Substance: ACETAMINOPHEN\CAFFEINE
     Route: 048
     Dates: start: 20210401, end: 20210401
  26. ACETAMINOPHEN\CAFFEINE [Concomitant]
     Active Substance: ACETAMINOPHEN\CAFFEINE
     Route: 048
     Dates: start: 20210408, end: 20210408
  27. BARBITAL [Concomitant]
     Active Substance: BARBITAL
     Indication: Premedication
     Route: 048
     Dates: start: 20210415, end: 20210415
  28. DIPHENHYDRAMINE HYDROCHLORIDE [Concomitant]
     Active Substance: DIPHENHYDRAMINE HYDROCHLORIDE
     Indication: Premedication
     Route: 030
     Dates: start: 20210423, end: 20210423
  29. DIPHENHYDRAMINE HYDROCHLORIDE [Concomitant]
     Active Substance: DIPHENHYDRAMINE HYDROCHLORIDE
     Route: 030
     Dates: start: 20210401, end: 20210401
  30. DIPHENHYDRAMINE HYDROCHLORIDE [Concomitant]
     Active Substance: DIPHENHYDRAMINE HYDROCHLORIDE
     Route: 030
     Dates: start: 20210315, end: 20210415
  31. DIPHENHYDRAMINE HYDROCHLORIDE [Concomitant]
     Active Substance: DIPHENHYDRAMINE HYDROCHLORIDE
     Route: 030
     Dates: start: 20210408, end: 20210408
  32. ASPIRIN [Concomitant]
     Active Substance: ASPIRIN
     Route: 048
     Dates: start: 201501
  33. NITROGLYCERIN [Concomitant]
     Active Substance: NITROGLYCERIN
  34. DALTEPARIN SODIUM [Concomitant]
     Active Substance: DALTEPARIN SODIUM
     Dosage: 5000 IU
     Route: 058
     Dates: start: 20210501
  35. DIPHENHYDRAMINE [Concomitant]
     Active Substance: DIPHENHYDRAMINE
     Indication: Premedication
     Route: 030
     Dates: start: 20210408, end: 20210408
  36. OXYGEN [Concomitant]
     Active Substance: OXYGEN
     Indication: Hypoxia
     Dosage: 3 OTHER
     Route: 055
     Dates: start: 20210430, end: 20210505
  37. OXYGEN [Concomitant]
     Active Substance: OXYGEN
     Indication: Infarction
  38. ACETAMINOPHEN [Concomitant]
     Active Substance: ACETAMINOPHEN
     Route: 048
     Dates: start: 20210416, end: 20210416

REACTIONS (1)
  - Acute myocardial infarction [Recovered/Resolved]

NARRATIVE: CASE EVENT DATE: 20210430
